FAERS Safety Report 8557052-7 (Version None)
Quarter: 2012Q3

REPORT INFORMATION
  Report Type: 
  Country: None (occurrence: None)
  Receive Date: 20120801
  Receipt Date: 20120725
  Transmission Date: 20120928
  Serious: Yes (Other)
  Sender: FDA-Public Use
  Company Number: GB-ABBOTT-12P-167-0955926-00

PATIENT
  Sex: Male

DRUGS (6)
  1. VALPROIC ACID [Suspect]
     Indication: PRODUCT USED FOR UNKNOWN INDICATION
     Route: 065
  2. DIAZEPAM [Suspect]
     Indication: PRODUCT USED FOR UNKNOWN INDICATION
     Route: 065
     Dates: start: 20120422
  3. CLOPIXOL [Suspect]
     Indication: PRODUCT USED FOR UNKNOWN INDICATION
     Route: 065
     Dates: start: 20120522
  4. SULPIRIDE [Suspect]
     Indication: PRODUCT USED FOR UNKNOWN INDICATION
     Route: 065
     Dates: start: 20120401
  5. HERBAL PREPARATION [Suspect]
     Indication: CYCLOTHYMIC DISORDER
     Route: 065
  6. VALPROATE SODIUM [Suspect]
     Indication: PRODUCT USED FOR UNKNOWN INDICATION
     Route: 065
     Dates: start: 20120422

REACTIONS (37)
  - DRUG DEPENDENCE [None]
  - EXCESSIVE MASTURBATION [None]
  - MEMORY IMPAIRMENT [None]
  - MALAISE [None]
  - AMNESIA [None]
  - COLOUR BLINDNESS ACQUIRED [None]
  - HYPERSENSITIVITY [None]
  - DECREASED APPETITE [None]
  - ABDOMINAL PAIN [None]
  - DIZZINESS POSTURAL [None]
  - AGITATION [None]
  - BALANCE DISORDER [None]
  - FATIGUE [None]
  - BREAST DISCHARGE [None]
  - SEDATION [None]
  - ERECTILE DYSFUNCTION [None]
  - SLEEP APNOEA SYNDROME [None]
  - TREMOR [None]
  - DISINHIBITION [None]
  - ANGER [None]
  - VOMITING [None]
  - IRRITABILITY [None]
  - AKATHISIA [None]
  - RASH MACULO-PAPULAR [None]
  - NEUROLEPTIC MALIGNANT SYNDROME [None]
  - ABNORMAL BEHAVIOUR [None]
  - WITHDRAWAL SYNDROME [None]
  - NAUSEA [None]
  - DYSARTHRIA [None]
  - DYSKINESIA [None]
  - GYNAECOMASTIA [None]
  - LIBIDO DISORDER [None]
  - INFLUENZA LIKE ILLNESS [None]
  - DYSPNOEA [None]
  - SOMNOLENCE [None]
  - LETHARGY [None]
  - RASH [None]
